FAERS Safety Report 21011290 (Version 1)
Quarter: 2022Q2

REPORT INFORMATION
  Report Type: Spontaneous
  Country: ES (occurrence: None)
  Receive Date: 20220627
  Receipt Date: 20220627
  Transmission Date: 20220720
  Serious: Yes (Life-Threatening, Hospitalization)
  Sender: FDA-Public Use
  Company Number: 2022A229141

PATIENT
  Age: 65 Year
  Sex: Female

DRUGS (5)
  1. LYNPARZA [Suspect]
     Active Substance: OLAPARIB
     Indication: Ovarian cancer
     Route: 048
     Dates: start: 20200216, end: 20210818
  2. LYNPARZA [Suspect]
     Active Substance: OLAPARIB
     Indication: Ovarian cancer
     Dosage: 300 MG CADA 12 HORAS
     Route: 048
     Dates: start: 20190802, end: 20200215
  3. CARBOPLATIN [Suspect]
     Active Substance: CARBOPLATIN
     Indication: Ovarian cancer
     Dosage: AUC 5, 8 CICLOS
     Route: 042
     Dates: start: 20190109, end: 20190705
  4. PACLITAXEL [Suspect]
     Active Substance: PACLITAXEL
     Indication: Ovarian cancer
     Dosage: 8 CICLOS175.0MG/M2 EVERY CYCLE
     Route: 042
     Dates: start: 20190109, end: 20190705
  5. BEVACIZUMAB [Suspect]
     Active Substance: BEVACIZUMAB
     Indication: Ovarian cancer
     Dosage: 15.0MG/KG EVERY CYCLE
     Route: 042
     Dates: start: 20190109, end: 20200629

REACTIONS (2)
  - Myelodysplastic syndrome [Not Recovered/Not Resolved]
  - Transformation to acute myeloid leukaemia [Not Recovered/Not Resolved]

NARRATIVE: CASE EVENT DATE: 20210817
